FAERS Safety Report 6179933-4 (Version None)
Quarter: 2009Q2

REPORT INFORMATION
  Report Type: 
  Country: None (occurrence: None)
  Receive Date: 20090505
  Receipt Date: 20090430
  Transmission Date: 20091009
  Serious: Yes (Hospitalization)
  Sender: FDA-Public Use
  Company Number: US-GENENTECH-280997

PATIENT
  Sex: Female
  Weight: 92.517 kg

DRUGS (2)
  1. HERCEPTIN [Suspect]
     Indication: BREAST CANCER METASTATIC
     Dosage: 363 MG, 1/WEEK
     Route: 042
     Dates: start: 20090327, end: 20090327
  2. TAXOTERE [Concomitant]
     Indication: DRUG USE FOR UNKNOWN INDICATION
     Dosage: 57 MG, UNK
     Dates: start: 20090320

REACTIONS (1)
  - INFUSION RELATED REACTION [None]
